FAERS Safety Report 9637445 (Version 1)
Quarter: 2013Q4

REPORT INFORMATION
  Report Type: Spontaneous
  Country: NA (occurrence: NA)
  Receive Date: 20131022
  Receipt Date: 20131022
  Transmission Date: 20140711
  Serious: Yes (Other)
  Sender: FDA-Public Use
  Company Number: NA-JNJFOC-20131010063

PATIENT
  Age: 11 Year
  Sex: Male

DRUGS (1)
  1. CONCERTA [Suspect]
     Indication: ATTENTION DEFICIT/HYPERACTIVITY DISORDER
     Route: 048

REACTIONS (2)
  - Epilepsy [Unknown]
  - Headache [Unknown]
